FAERS Safety Report 6725798-9 (Version None)
Quarter: 2010Q2

REPORT INFORMATION
  Report Type: 
  Country: None (occurrence: None)
  Receive Date: 20100514
  Receipt Date: 20100430
  Transmission Date: 20101027
  Serious: Yes (Other)
  Sender: FDA-Public Use
  Company Number: PHHY2010US26221

PATIENT
  Sex: Male

DRUGS (17)
  1. CLOZARIL [Suspect]
     Dosage: 25 MG, UNK
     Dates: start: 20100428
  2. CLOZARIL [Suspect]
     Dosage: 50 MG AT NIGHT
     Dates: start: 20100429
  3. ZYPREXA ZYDIS [Suspect]
     Dosage: 5 MG, TID
  4. ZYPREXA ZYDIS [Suspect]
     Dosage: 10 MG, UNK
     Dates: start: 20100410
  5. ZYPREXA ZYDIS [Suspect]
     Dosage: 10 MG, TID
     Dates: start: 20100428
  6. GEODON [Suspect]
     Dosage: 80 MG, BID
  7. GEODON [Suspect]
     Dosage: 70 MG, UNK
     Dates: start: 20100410
  8. TRILAFON [Suspect]
     Dosage: 36 MG, UNK
  9. TRILAFON [Suspect]
     Dosage: 36 MG AT NIGHT
     Dates: start: 20100428
  10. ATIVAN [Suspect]
     Dosage: ONE TIME DOSE
  11. SEROQUEL [Suspect]
     Dosage: 150 MG, UNK
     Dates: start: 20100410
  12. SEROQUEL [Suspect]
     Dosage: 100 MG, TID
     Dates: start: 20100428
  13. TYLENOL (CAPLET) [Suspect]
     Dosage: 325 MG, UNK
     Dates: start: 20100410
  14. KLONOPIN [Suspect]
     Dosage: 1 MG, TID
     Dates: start: 20100428
  15. PROZAC [Suspect]
     Dosage: 20 MG IN MORNING
  16. PHENERGAN [Suspect]
  17. PROTONIX [Suspect]

REACTIONS (4)
  - CONCOMITANT DISEASE AGGRAVATED [None]
  - HALLUCINATION [None]
  - PARANOIA [None]
  - PSYCHOTIC DISORDER [None]
